FAERS Safety Report 25117811 (Version 1)
Quarter: 2025Q1

REPORT INFORMATION
  Report Type: Spontaneous
  Country: US (occurrence: US)
  Receive Date: 20250325
  Receipt Date: 20250325
  Transmission Date: 20250408
  Serious: No
  Sender: GRIFOLS
  Company Number: US-IGSA-BIG0033640

PATIENT

DRUGS (5)
  1. GAMUNEX-C [Suspect]
     Active Substance: HUMAN IMMUNOGLOBULIN G
     Indication: Neuropathy peripheral
     Dosage: 100 GRAM, Q.WK.
  2. TENOFOVIR [Concomitant]
     Active Substance: TENOFOVIR
  3. DULOXETINE [Concomitant]
     Active Substance: DULOXETINE
  4. FOLIC ACID [Concomitant]
     Active Substance: FOLIC ACID
  5. DUPIXENT [Suspect]
     Active Substance: DUPILUMAB

REACTIONS (1)
  - Urticaria [Unknown]

NARRATIVE: CASE EVENT DATE: 20250305
